FAERS Safety Report 8363400-3 (Version None)
Quarter: 2012Q2

REPORT INFORMATION
  Report Type: 
  Country: None (occurrence: None)
  Receive Date: 20120516
  Receipt Date: 20120103
  Transmission Date: 20120825
  Serious: Yes (Hospitalization, Other)
  Sender: FDA-Public Use
  Company Number: US-ALEXION-A201101815

PATIENT
  Sex: Male
  Weight: 95.2 kg

DRUGS (2)
  1. SOLIRIS [Suspect]
     Indication: PAROXYSMAL NOCTURNAL HAEMOGLOBINURIA
     Dosage: UNK
     Route: 042
  2. COUMADIN [Concomitant]
     Indication: THROMBOSIS PROPHYLAXIS
     Dosage: UNK

REACTIONS (1)
  - THROMBOSIS IN DEVICE [None]
